FAERS Safety Report 6312553-7 (Version None)
Quarter: 2009Q3

REPORT INFORMATION
  Report Type: 
  Country: None (occurrence: None)
  Receive Date: 20090817
  Receipt Date: 20090505
  Transmission Date: 20100115
  Serious: No
  Sender: FDA-Public Use
  Company Number: US-ALLERGAN-0906294US

PATIENT
  Sex: Female

DRUGS (2)
  1. SANCTURA XR [Suspect]
     Indication: HYPERTONIC BLADDER
     Dosage: 60 MG, SINGLE
     Route: 048
     Dates: start: 20090503, end: 20090503
  2. ACIPHEX [Concomitant]
     Dosage: UNK, QAM
     Route: 048

REACTIONS (1)
  - TONGUE DISCOLOURATION [None]
